FAERS Safety Report 8380477-X (Version None)
Quarter: 2012Q2

REPORT INFORMATION
  Report Type: 
  Country: None (occurrence: None)
  Receive Date: 20120523
  Receipt Date: 20120514
  Transmission Date: 20120825
  Serious: Yes (Hospitalization)
  Sender: FDA-Public Use
  Company Number: JP-GLAXOSMITHKLINE-B0785280A

PATIENT
  Sex: Male

DRUGS (15)
  1. REQUIP [Suspect]
     Dosage: 4.5MG PER DAY
     Route: 048
     Dates: start: 20110801
  2. CELESTAMINE TAB [Concomitant]
     Dosage: 1IUAX PER DAY
     Route: 048
  3. ASPIRIN [Concomitant]
     Dosage: 1IUAX PER DAY
     Route: 048
  4. DROXIDOPA [Concomitant]
     Dosage: 600MG PER DAY
     Route: 048
  5. FAMOTIDINE [Concomitant]
     Dosage: 1IUAX PER DAY
     Route: 048
  6. VESICARE [Concomitant]
     Dosage: 1IUAX PER DAY
     Route: 048
  7. SERMION [Concomitant]
     Dosage: 2IUAX PER DAY
     Route: 048
  8. REQUIP [Suspect]
     Indication: DEMENTIA WITH LEWY BODIES
     Dosage: 6MG PER DAY
     Route: 048
     Dates: start: 20110829
  9. REQUIP [Suspect]
     Dosage: 3MG PER DAY
     Route: 048
  10. EC DOPARL [Concomitant]
     Indication: DEMENTIA WITH LEWY BODIES
     Dosage: 6MG PER DAY
     Route: 048
     Dates: start: 20110801
  11. DROXIDOPA [Concomitant]
     Indication: DEMENTIA WITH LEWY BODIES
     Dosage: 600MG PER DAY
     Route: 048
     Dates: start: 20110801
  12. TAMSULOSIN HCL [Concomitant]
     Dosage: 1IUAX PER DAY
     Route: 048
  13. ARICEPT [Concomitant]
     Dosage: 1IUAX PER DAY
     Route: 048
  14. METLIGINE [Concomitant]
     Dosage: 2IUAX PER DAY
     Route: 048
  15. FLORINEF [Concomitant]
     Dosage: .2IUAX PER DAY
     Route: 048

REACTIONS (3)
  - PYREXIA [None]
  - HALLUCINATION [None]
  - SUDDEN ONSET OF SLEEP [None]
